FAERS Safety Report 9645781 (Version 1)
Quarter: 2013Q4

REPORT INFORMATION
  Report Type: Spontaneous
  Country: US (occurrence: None)
  Receive Date: 20131024
  Receipt Date: 20131024
  Transmission Date: 20140711
  Serious: Yes (Other)
  Sender: FDA-Public Use
  Company Number: None

PATIENT
  Age: 48 Year
  Sex: Female
  Weight: 89.36 kg

DRUGS (5)
  1. BUPRENORPHINE/NALOXONE [Suspect]
     Indication: DRUG DEPENDENCE
     Dosage: 1 TABLET
     Route: 060
  2. OMEPRAZOLE 40MG [Concomitant]
  3. AMLODIPINE 5MG [Concomitant]
  4. ONDANSETROM 4MG [Concomitant]
  5. LISINOPRIL/HYDROCHLOROTHIAZIDE 20/25MG [Concomitant]

REACTIONS (4)
  - Product formulation issue [None]
  - Tongue ulceration [None]
  - Sneezing [None]
  - Retching [None]
